FAERS Safety Report 10501100 (Version 1)
Quarter: 2014Q4

REPORT INFORMATION
  Report Type: Spontaneous
  Country: US (occurrence: None)
  Receive Date: 20141006
  Receipt Date: 20141006
  Transmission Date: 20150528
  Serious: No
  Sender: FDA-Public Use
  Company Number: None

PATIENT
  Age: 44 Year
  Sex: Male
  Weight: 130.7 kg

DRUGS (1)
  1. LISINOPRIL. [Suspect]
     Active Substance: LISINOPRIL
     Indication: HYPERTENSION
     Route: 048
     Dates: start: 20120313, end: 20140225

REACTIONS (5)
  - Urticaria [None]
  - Arthralgia [None]
  - Angioedema [None]
  - Pruritus [None]
  - Diarrhoea [None]

NARRATIVE: CASE EVENT DATE: 20140225
